FAERS Safety Report 7310166-1 (Version None)
Quarter: 2011Q1

REPORT INFORMATION
  Report Type: 
  Country: None (occurrence: None)
  Receive Date: 20110224
  Receipt Date: 20110215
  Transmission Date: 20110831
  Serious: No
  Sender: FDA-Public Use
  Company Number: US-PFIZER INC-2010150839

PATIENT
  Age: 32 Year
  Sex: Male

DRUGS (3)
  1. MULTI-VITAMINS [Concomitant]
     Dosage: UNK
  2. MTV [Concomitant]
     Dosage: UNK, 1X/DAY
  3. PRISTIQ [Suspect]
     Indication: DEPRESSION
     Dosage: 50 MG, 1X/DAY
     Route: 048
     Dates: start: 20100901

REACTIONS (2)
  - MEDICATION RESIDUE [None]
  - ABDOMINAL DISCOMFORT [None]
